FAERS Safety Report 6732627-6 (Version None)
Quarter: 2010Q2

REPORT INFORMATION
  Report Type: 
  Country: None (occurrence: None)
  Receive Date: 20100514
  Receipt Date: 20100507
  Transmission Date: 20101027
  Serious: Yes (Life-Threatening, Other)
  Sender: FDA-Public Use
  Company Number: 2010SP017526

PATIENT
  Age: 52 Year
  Sex: Male

DRUGS (11)
  1. MIRTAZAPINE [Suspect]
     Indication: DEPRESSION
     Dosage: 30 MG; QD; PO, 15 MG; QD; PO
     Route: 048
     Dates: start: 20090925, end: 20091001
  2. MIRTAZAPINE [Suspect]
     Indication: DEPRESSION
     Dosage: 30 MG; QD; PO, 15 MG; QD; PO
     Route: 048
     Dates: start: 20091002, end: 20091009
  3. MIRTAZAPINE [Suspect]
     Indication: DEPRESSION
     Dosage: 30 MG; QD; PO, 15 MG; QD; PO
     Route: 048
     Dates: start: 20091010, end: 20100215
  4. SEROQUEL [Suspect]
     Indication: INSOMNIA
     Dosage: 10 MG; HS; PO, 25 MG; QD; PO
     Route: 048
     Dates: start: 20100129, end: 20100204
  5. SEROQUEL [Suspect]
     Indication: INSOMNIA
     Dosage: 10 MG; HS; PO, 25 MG; QD; PO
     Route: 048
     Dates: start: 20100205, end: 20100215
  6. ALPRAZOLAM [Concomitant]
  7. BROTIZOLAM [Concomitant]
  8. FLUNITRAZEPAM [Concomitant]
  9. MAGNESIUM OXIDE [Concomitant]
  10. MOSAPRIDE CITRATE [Concomitant]
  11. RABEPRAZOLE SODIUM [Concomitant]

REACTIONS (17)
  - ANXIETY [None]
  - BLOOD POTASSIUM INCREASED [None]
  - CONTUSION [None]
  - DECREASED APPETITE [None]
  - DIALYSIS [None]
  - DRUG INTERACTION [None]
  - DYSPHONIA [None]
  - DYSPNOEA [None]
  - EMOTIONAL DISTRESS [None]
  - FALL [None]
  - FATIGUE [None]
  - FLUID INTAKE REDUCED [None]
  - HYPOPHAGIA [None]
  - INSOMNIA [None]
  - NO THERAPEUTIC RESPONSE [None]
  - RENAL FAILURE ACUTE [None]
  - SOMNOLENCE [None]
